FAERS Safety Report 15140066 (Version 1)
Quarter: 2018Q3

REPORT INFORMATION
  Report Type: Spontaneous
  Country: US (occurrence: US)
  Receive Date: 20180713
  Receipt Date: 20180713
  Transmission Date: 20181010
  Serious: No
  Sender: FDA-Public Use
  Company Number: US-DSJP-DSU-2018-118958

PATIENT
  Age: 44 Year
  Sex: Female

DRUGS (3)
  1. NUCYNTA [Concomitant]
     Active Substance: TAPENTADOL HYDROCHLORIDE
     Indication: NEURALGIA
     Dosage: 100 MG, QID
     Route: 048
     Dates: start: 20180101
  2. MORPHABOND ER [Suspect]
     Active Substance: MORPHINE SULFATE
     Dosage: 15 MG, BID
     Route: 065
     Dates: start: 201805, end: 20180612
  3. MORPHABOND ER [Suspect]
     Active Substance: MORPHINE SULFATE
     Indication: PAIN
     Dosage: 15 MG, BID
     Route: 065
     Dates: start: 201804, end: 20180507

REACTIONS (3)
  - Treatment noncompliance [Recovered/Resolved]
  - Medication residue present [Recovered/Resolved]
  - Drug ineffective [Recovered/Resolved]

NARRATIVE: CASE EVENT DATE: 2018
